FAERS Safety Report 17658975 (Version 1)
Quarter: 2020Q2

REPORT INFORMATION
  Report Type: Spontaneous
  Country: CA (occurrence: CA)
  Receive Date: 20200413
  Receipt Date: 20200413
  Transmission Date: 20200713
  Serious: Yes (Life-Threatening, Hospitalization, Other)
  Sender: FDA-Public Use
  Company Number: CA-TEVA-2020-CA-1220706

PATIENT
  Age: 71 Year
  Sex: Female

DRUGS (15)
  1. CIPRALEX [Concomitant]
     Active Substance: ESCITALOPRAM OXALATE
  2. GABAPENTIN. [Concomitant]
     Active Substance: GABAPENTIN
  3. PREDNISONE. [Suspect]
     Active Substance: PREDNISONE
     Indication: NON-HODGKIN^S LYMPHOMA
     Route: 042
  4. ASA [Concomitant]
     Active Substance: ASPIRIN
  5. VENTOLIN [Concomitant]
     Active Substance: ALBUTEROL SULFATE
  6. DOXORUBICIN HYDROCHLORIDE. [Suspect]
     Active Substance: DOXORUBICIN HYDROCHLORIDE
     Indication: NON-HODGKIN^S LYMPHOMA
     Route: 042
  7. INDACATEROL MALEATE [Concomitant]
     Active Substance: INDACATEROL MALEATE
  8. VINCRISTINE SULFATE. [Suspect]
     Active Substance: VINCRISTINE SULFATE
     Indication: NON-HODGKIN^S LYMPHOMA
     Route: 042
  9. GLYCOPYRRONIUM BROMIDE [Concomitant]
     Active Substance: GLYCOPYRRONIUM
  10. DILANTIN [Concomitant]
     Active Substance: PHENYTOIN
  11. OLANZAPINE. [Suspect]
     Active Substance: OLANZAPINE
     Indication: PRODUCT USED FOR UNKNOWN INDICATION
     Route: 065
  12. PROCYTOX [Suspect]
     Active Substance: CYCLOPHOSPHAMIDE
     Indication: NON-HODGKIN^S LYMPHOMA
     Route: 042
  13. RITUXAN [Suspect]
     Active Substance: RITUXIMAB
     Indication: NON-HODGKIN^S LYMPHOMA
     Route: 042
  14. BISOPROLOL [Concomitant]
     Active Substance: BISOPROLOL
  15. LORAZEPAM. [Concomitant]
     Active Substance: LORAZEPAM

REACTIONS (13)
  - Coma [Not Recovered/Not Resolved]
  - Septic shock [Not Recovered/Not Resolved]
  - Gastrointestinal disorder [Not Recovered/Not Resolved]
  - Chronic obstructive pulmonary disease [Not Recovered/Not Resolved]
  - Brain injury [Not Recovered/Not Resolved]
  - Dizziness [Not Recovered/Not Resolved]
  - Paranoia [Not Recovered/Not Resolved]
  - Second primary malignancy [Not Recovered/Not Resolved]
  - Seizure [Not Recovered/Not Resolved]
  - Pneumonia [Not Recovered/Not Resolved]
  - Respiratory failure [Not Recovered/Not Resolved]
  - Depression [Not Recovered/Not Resolved]
  - Lung neoplasm malignant [Not Recovered/Not Resolved]
